FAERS Safety Report 4280986-9 (Version None)
Quarter: 2004Q1

REPORT INFORMATION
  Report Type: 
  Country: None (occurrence: None)
  Receive Date: 20040127
  Receipt Date: 20040119
  Transmission Date: 20041129
  Serious: Yes (Other)
  Sender: FDA-Public Use
  Company Number: HQWYE480920JAN04

PATIENT
  Sex: Female

DRUGS (2)
  1. PREMARIN [Suspect]
     Dosage: ORAL
     Route: 048
  2. PROVERA [Suspect]
     Dosage: UNKNOWN BUT EVERY DAY

REACTIONS (1)
  - BENIGN PANCREATIC NEOPLASM [None]
